FAERS Safety Report 19693577 (Version 2)
Quarter: 2021Q3

REPORT INFORMATION
  Report Type: Report from Study
  Country: IL (occurrence: IL)
  Receive Date: 20210813
  Receipt Date: 20210823
  Transmission Date: 20211014
  Serious: Yes (Other)
  Sender: FDA-Public Use
  Company Number: IL-IPSEN BIOPHARMACEUTICALS, INC.-2020-02952

PATIENT
  Age: 67 Year
  Sex: Female

DRUGS (10)
  1. SOMATULINE AUTOGEL [Suspect]
     Active Substance: LANREOTIDE ACETATE
     Route: 058
     Dates: start: 20210707
  2. SIMVASTATIN. [Concomitant]
     Active Substance: SIMVASTATIN
  3. SOMATULINE AUTOGEL [Suspect]
     Active Substance: LANREOTIDE ACETATE
     Indication: NEUROENDOCRINE TUMOUR
     Route: 058
     Dates: start: 20110329, end: 2020
  4. ARAVA [Concomitant]
     Active Substance: LEFLUNOMIDE
  5. CLONEX [Concomitant]
  6. LANTON [Concomitant]
  7. LORIVAN [Concomitant]
     Active Substance: LORAZEPAM
  8. EUTHYROX [Concomitant]
     Active Substance: LEVOTHYROXINE SODIUM
  9. ENALAPRIL [Concomitant]
     Active Substance: ENALAPRIL
  10. PROZAC [Concomitant]
     Active Substance: FLUOXETINE HYDROCHLORIDE

REACTIONS (6)
  - Pulmonary cavitation [Not Recovered/Not Resolved]
  - Hiccups [Unknown]
  - Abdominal pain [Unknown]
  - Pulmonary mass [Not Recovered/Not Resolved]
  - Diarrhoea [Not Recovered/Not Resolved]
  - Nausea [Unknown]

NARRATIVE: CASE EVENT DATE: 202107
